FAERS Safety Report 10182489 (Version 1)
Quarter: 2014Q2

REPORT INFORMATION
  Report Type: Report from Study
  Country: CA (occurrence: CA)
  Receive Date: 20140520
  Receipt Date: 20140520
  Transmission Date: 20141212
  Serious: Yes (Hospitalization)
  Sender: FDA-Public Use
  Company Number: CA-JNJFOC-20140507713

PATIENT
  Age: 42 Year
  Sex: Female
  Weight: 72.6 kg

DRUGS (1)
  1. REMICADE [Suspect]
     Indication: COLITIS ULCERATIVE
     Route: 042
     Dates: start: 20130101, end: 20140512

REACTIONS (3)
  - Ileostomy [Unknown]
  - Off label use [Unknown]
  - Incorrect dose administered [Unknown]
